FAERS Safety Report 8530669 (Version 2)
Quarter: 2012Q4

REPORT INFORMATION
  Report Type: 
  Country: US (occurrence: US)
  Receive Date: 20120425
  Receipt Date: 20120919
  Transmission Date: 20130627
  Serious: Yes (Hospitalization, Other)
  Sender: FDA-Public Use
  Company Number: US-ELI_LILLY_AND_COMPANY-US201204006155

PATIENT
  Age: 58 None
  Sex: Male
  Weight: 101.13 kg

DRUGS (16)
  1. AXIRON [Suspect]
     Indication: BLOOD TESTOSTERONE DECREASED
     Dosage: UNK, unknown
     Route: 061
     Dates: start: 20120216, end: 20120412
  2. VOLTAREN                                /SCH/ [Concomitant]
     Dosage: 75 mg, bid
     Route: 048
  3. DRISDOL [Concomitant]
     Dosage: 50000 u, weekly (1/W)
     Route: 048
  4. ADVAIR [Concomitant]
     Dosage: 1 UNK, UNK
  5. HYDRODIURIL [Concomitant]
     Dosage: 25 mg, qd
     Route: 048
  6. MOTRIN [Concomitant]
     Indication: PAIN
     Dosage: 200 mg, prn
  7. COMBIVENT [Concomitant]
  8. SYNTHROID [Concomitant]
     Dosage: 175 ug, qd
     Route: 048
  9. PRINIVIL [Concomitant]
     Dosage: 40 mg, qd
  10. METFORMIN [Concomitant]
     Indication: DIABETES MELLITUS
     Dosage: 1000 mg, qd
     Route: 048
  11. THERAGRAN [Concomitant]
  12. LYRICA [Concomitant]
     Dosage: 50 mg, qd
     Route: 048
  13. LYRICA [Concomitant]
     Dosage: 100 mg, qd
     Route: 048
  14. SPIRIVA [Concomitant]
     Dosage: 18 ug, qd
     Route: 055
  15. ULTRAM [Concomitant]
     Indication: PAIN
     Dosage: 50 mg, prn
     Route: 048
  16. B-50 [Concomitant]
     Route: 048

REACTIONS (3)
  - Mania [Recovering/Resolving]
  - Intentional self-injury [Recovering/Resolving]
  - Alcohol poisoning [Recovering/Resolving]
